FAERS Safety Report 4600485-1 (Version None)
Quarter: 2005Q1

REPORT INFORMATION
  Report Type: 
  Country: None (occurrence: None)
  Receive Date: 20050301
  Receipt Date: 20050223
  Transmission Date: 20050727
  Serious: Yes (Hospitalization)
  Sender: FDA-Public Use
  Company Number: 2005-00287

PATIENT
  Age: 61 Year
  Sex: Male

DRUGS (1)
  1. IMMUCYST             (BCG - IT (CONNAUGHT), [Suspect]
     Indication: BLADDER CANCER
     Route: 043

REACTIONS (6)
  - ARTHRITIS REACTIVE [None]
  - BLOOD CREATINE PHOSPHOKINASE INCREASED [None]
  - BLOOD FIBRINOGEN INCREASED [None]
  - CONJUNCTIVITIS [None]
  - RED BLOOD CELL SEDIMENTATION RATE INCREASED [None]
  - URETHRAL DISORDER [None]
